FAERS Safety Report 6103154-4 (Version None)
Quarter: 2009Q1

REPORT INFORMATION
  Report Type: 
  Country: None (occurrence: None)
  Receive Date: 20090305
  Receipt Date: 20090219
  Transmission Date: 20090719
  Serious: Yes (Life-Threatening, Hospitalization, Other)
  Sender: FDA-Public Use
  Company Number: JP-PFIZER INC-2009174816

PATIENT

DRUGS (2)
  1. MIGLITOL [Suspect]
     Indication: DIABETES MELLITUS
     Dosage: 3 TABLETS DAILY
     Route: 048
     Dates: end: 20090121
  2. NATEGLINIDE [Suspect]
     Dosage: 270 MG, UNK
     Route: 048

REACTIONS (3)
  - ABDOMINAL PAIN [None]
  - BACK PAIN [None]
  - ILEUS [None]
